FAERS Safety Report 18793909 (Version 1)
Quarter: 2021Q1

REPORT INFORMATION
  Report Type: Spontaneous
  Country: DE (occurrence: DE)
  Receive Date: 20210127
  Receipt Date: 20210127
  Transmission Date: 20210419
  Serious: Yes (Other)
  Sender: FDA-Public Use
  Company Number: DE-SUN PHARMACEUTICAL INDUSTRIES LTD-2021R1-276467

PATIENT
  Age: 14 Week
  Sex: Male

DRUGS (3)
  1. BISOPROLOL [Concomitant]
     Active Substance: BISOPROLOL
     Indication: LEFT VENTRICLE OUTFLOW TRACT OBSTRUCTION
     Dosage: UNK
     Route: 065
  2. METFORMIN [Suspect]
     Active Substance: METFORMIN HYDROCHLORIDE
     Indication: BLOOD INSULIN ABNORMAL
     Dosage: 25 MILLIGRAM/KILOGRAM, DAILY
     Route: 065
  3. L?THYROXIN SUPPLEMENTATION [Concomitant]
     Indication: HYPOTHYROIDISM
     Dosage: UNK
     Route: 065

REACTIONS (6)
  - Skin haemorrhage [Recovered/Resolved]
  - Haematochezia [Recovered/Resolved]
  - Hepatic failure [Recovered/Resolved]
  - Drug ineffective [Unknown]
  - Haematuria [Recovered/Resolved]
  - International normalised ratio decreased [Recovered/Resolved]
